FAERS Safety Report 23856977 (Version 2)
Quarter: 2024Q2

REPORT INFORMATION
  Report Type: Spontaneous
  Country: IN (occurrence: IN)
  Receive Date: 20240515
  Receipt Date: 20240528
  Transmission Date: 20240716
  Serious: Yes (Hospitalization, Other)
  Sender: FDA-Public Use
  Company Number: IN-MLMSERVICE-20240430-PI045555-00322-1

PATIENT
  Age: 32 Year
  Sex: Male
  Weight: 64 kg

DRUGS (7)
  1. TRAMADOL [Suspect]
     Active Substance: TRAMADOL\TRAMADOL HYDROCHLORIDE
     Indication: Affective disorder
     Route: 048
     Dates: start: 2022
  2. TRAMADOL [Suspect]
     Active Substance: TRAMADOL\TRAMADOL HYDROCHLORIDE
     Dosage: DOSES ESCALATING
     Route: 048
     Dates: end: 2021
  3. TRAMADOL [Suspect]
     Active Substance: TRAMADOL\TRAMADOL HYDROCHLORIDE
     Dosage: 5 YEARS
     Route: 048
     Dates: start: 2016, end: 2020
  4. TRAMADOL [Suspect]
     Active Substance: TRAMADOL\TRAMADOL HYDROCHLORIDE
     Route: 048
  5. TRAMADOL [Suspect]
     Active Substance: TRAMADOL\TRAMADOL HYDROCHLORIDE
     Dosage: 800-1200 MG
     Route: 048
  6. ALPRAZOLAM [Concomitant]
     Active Substance: ALPRAZOLAM
     Dosage: UP TO 5 MG DAILY FOR ABOUT 5 YEARS
     Route: 065
     Dates: start: 2016, end: 2020
  7. ALPRAZOLAM [Concomitant]
     Active Substance: ALPRAZOLAM
     Dosage: UP TO 5 MG DAILY FOR ABOUT 5 YEARS
     Route: 065
     Dates: start: 2022

REACTIONS (5)
  - Anhedonia [Recovering/Resolving]
  - Depression [Recovering/Resolving]
  - Lethargy [Recovering/Resolving]
  - Withdrawal syndrome [Recovering/Resolving]
  - Drug dependence [Recovering/Resolving]
